FAERS Safety Report 7880224-1 (Version None)
Quarter: 2011Q4

REPORT INFORMATION
  Report Type: 
  Country: None (occurrence: None)
  Receive Date: 20111101
  Receipt Date: 20111027
  Transmission Date: 20120403
  Serious: No
  Sender: FDA-Public Use
  Company Number: US-PFIZER INC-2011252950

PATIENT
  Age: 53 Year
  Sex: Female
  Weight: 62.7 kg

DRUGS (2)
  1. REVATIO [Suspect]
     Dosage: UNK
  2. TREPROSTINIL SODIUM [Suspect]
     Indication: PULMONARY ARTERIAL HYPERTENSION
     Dosage: 72 UG, UNK
     Route: 055
     Dates: start: 20110906

REACTIONS (4)
  - NAUSEA [None]
  - NASOPHARYNGITIS [None]
  - HEADACHE [None]
  - COUGH [None]
